FAERS Safety Report 23701636 (Version 1)
Quarter: 2024Q2

REPORT INFORMATION
  Report Type: Spontaneous
  Country: US (occurrence: US)
  Receive Date: 20240403
  Receipt Date: 20240403
  Transmission Date: 20240716
  Serious: Yes (Disabling, Other)
  Sender: FDA-Public Use
  Company Number: US-REGENERON PHARMACEUTICALS, INC.-2024-050981

PATIENT
  Age: 85 Year
  Sex: Female

DRUGS (1)
  1. EYLEA HD [Suspect]
     Active Substance: AFLIBERCEPT
     Indication: Neovascular age-related macular degeneration
     Dosage: UNK, FORMULATION: HD VIAL
     Route: 031
     Dates: start: 20240315

REACTIONS (2)
  - Endophthalmitis [Unknown]
  - Blindness unilateral [Unknown]

NARRATIVE: CASE EVENT DATE: 20240301
